APPROVED DRUG PRODUCT: PODOFILOX
Active Ingredient: PODOFILOX
Strength: 0.5%
Dosage Form/Route: GEL;TOPICAL
Application: A211871 | Product #001
Applicant: PADAGIS US LLC
Approved: Nov 22, 2023 | RLD: No | RS: Yes | Type: RX